FAERS Safety Report 13984704 (Version 2)
Quarter: 2017Q3

REPORT INFORMATION
  Report Type: Report from Study
  Country: None (occurrence: SA)
  Receive Date: 20170918
  Receipt Date: 20170922
  Transmission Date: 20171128
  Serious: Yes (Death, Hospitalization, Other)
  Sender: FDA-Public Use
  Company Number: SA-ABBVIE-17P-259-2105283-00

PATIENT
  Age: 66 Year
  Sex: Female

DRUGS (1)
  1. VIEKIRAX [Suspect]
     Active Substance: OMBITASVIR\PARITAPREVIR\RITONAVIR
     Indication: HEPATITIS C
     Route: 048
     Dates: start: 201708

REACTIONS (8)
  - Feeling hot [Unknown]
  - Blood potassium increased [Unknown]
  - Lethargy [Unknown]
  - Pruritus [Unknown]
  - Pain [Unknown]
  - Fatigue [Unknown]
  - Sepsis [Fatal]
  - Arrhythmia [Unknown]

NARRATIVE: CASE EVENT DATE: 20170906
